FAERS Safety Report 13365532 (Version 1)
Quarter: 2017Q1

REPORT INFORMATION
  Report Type: Spontaneous
  Country: AT (occurrence: AT)
  Receive Date: 20170323
  Receipt Date: 20170323
  Transmission Date: 20170429
  Serious: Yes (Hospitalization)
  Sender: FDA-Public Use
  Company Number: AT-IPCA LABORATORIES LIMITED-IPC201703-000276

PATIENT
  Age: 75 Year
  Sex: Male

DRUGS (12)
  1. BISOPROLOL [Concomitant]
     Active Substance: BISOPROLOL
  2. TIZANIDINE. [Concomitant]
     Active Substance: TIZANIDINE
  3. TRAMADOL. [Suspect]
     Active Substance: TRAMADOL
     Indication: CHEST PAIN
  4. DICLOFENAC [Suspect]
     Active Substance: DICLOFENAC
     Indication: CHEST PAIN
  5. AMLODIPINE BESILATE [Concomitant]
     Active Substance: AMLODIPINE BESYLATE
  6. FUROSEMIDE. [Concomitant]
     Active Substance: FUROSEMIDE
  7. METFORMIN HYDROCHLORIDE. [Suspect]
     Active Substance: METFORMIN HYDROCHLORIDE
  8. DABIGATRAN [Suspect]
     Active Substance: DABIGATRAN
     Indication: ATRIAL FIBRILLATION
  9. NAPROXEN. [Suspect]
     Active Substance: NAPROXEN
     Indication: CHEST PAIN
  10. VALSARTAN. [Concomitant]
     Active Substance: VALSARTAN
  11. ATORVASTATIN [Concomitant]
     Active Substance: ATORVASTATIN
  12. NICORANDIL [Concomitant]
     Active Substance: NICORANDIL

REACTIONS (4)
  - Drug interaction [Unknown]
  - Pericardial haemorrhage [Recovering/Resolving]
  - Drug ineffective [Unknown]
  - Gastritis haemorrhagic [Recovered/Resolved]
